FAERS Safety Report 18342685 (Version 2)
Quarter: 2020Q4

REPORT INFORMATION
  Report Type: Spontaneous
  Country: PE (occurrence: PE)
  Receive Date: 20201005
  Receipt Date: 20201016
  Transmission Date: 20210113
  Serious: Yes (Other)
  Sender: FDA-Public Use
  Company Number: PE-LUPIN PHARMACEUTICALS INC.-2020-06687

PATIENT
  Age: 13 Year
  Sex: Female
  Weight: 58 kg

DRUGS (8)
  1. MANNITOL. [Concomitant]
     Active Substance: MANNITOL
     Indication: BRAIN OEDEMA
     Dosage: 0.25 GRAM PER KILOGRAM
     Route: 042
  2. METAMIZOLE [Concomitant]
     Active Substance: METAMIZOLE
     Indication: PYREXIA
     Dosage: UNK
     Route: 065
  3. DEXAMETHASONE. [Concomitant]
     Active Substance: DEXAMETHASONE
     Indication: COVID-19
     Dosage: 16 MILLIGRAM, QD
     Route: 042
  4. CEFTRIAXONE. [Concomitant]
     Active Substance: CEFTRIAXONE
     Indication: ENCEPHALITIS VIRAL
     Dosage: UNK, BID
  5. ACYCLOVIR [ACICLOVIR] [Concomitant]
     Active Substance: ACYCLOVIR
     Indication: ENCEPHALITIS VIRAL
     Dosage: 40 MILLIGRAM/KILOGRAM, QD,EVERY SIX HOURS
     Route: 042
  6. HALOPERIDOL. [Concomitant]
     Active Substance: HALOPERIDOL
     Indication: PSYCHOMOTOR HYPERACTIVITY
     Dosage: 0.02 MILLIGRAM/KILOGRAM, QD
     Route: 065
  7. HYDROXYCHLOROQUINE [Suspect]
     Active Substance: HYDROXYCHLOROQUINE
     Indication: COVID-19
     Dosage: 400 MILLIGRAM, QD
     Route: 048
  8. AZITHROMYCIN ANHYDROUS. [Suspect]
     Active Substance: AZITHROMYCIN ANHYDROUS
     Indication: COVID-19
     Dosage: 10 MILLIGRAM/KILOGRAM, QD
     Route: 048

REACTIONS (1)
  - Off label use [Unknown]
